FAERS Safety Report 9325578 (Version 1)
Quarter: 2013Q2

REPORT INFORMATION
  Report Type: Spontaneous
  Country: DK (occurrence: DK)
  Receive Date: 20130604
  Receipt Date: 20130604
  Transmission Date: 20140414
  Serious: Yes (Life-Threatening, Hospitalization)
  Sender: FDA-Public Use
  Company Number: DK-ACCORD-017828

PATIENT
  Age: 72 Year
  Sex: Male

DRUGS (2)
  1. QUETIAPINE FUMARATE [Suspect]
     Indication: PSYCHOTIC DISORDER
     Dosage: STRENGHT: 100 MG
     Route: 048
     Dates: start: 20130213, end: 20130305
  2. EMPERAL [Interacting]
     Indication: NAUSEA
     Dosage: STRENGTH: 10 MG
     Route: 048
     Dates: start: 20130211, end: 20130305

REACTIONS (2)
  - Drug interaction [Unknown]
  - Delirium [Recovered/Resolved]
